FAERS Safety Report 10165117 (Version 1)
Quarter: 2014Q2

REPORT INFORMATION
  Report Type: Spontaneous
  Country: US (occurrence: US)
  Receive Date: 20140510
  Receipt Date: 20140510
  Transmission Date: 20141212
  Serious: No
  Sender: FDA-Public Use
  Company Number: US-BRISTOL-MYERS SQUIBB COMPANY-20283388

PATIENT
  Age: 57 Year
  Sex: Female
  Weight: 108.84 kg

DRUGS (4)
  1. BYDUREON [Suspect]
     Indication: DIABETES MELLITUS
  2. INSULIN [Concomitant]
  3. STRATTERA [Concomitant]
  4. VITAMIN B12 [Concomitant]

REACTIONS (2)
  - Vomiting [Unknown]
  - Nausea [Unknown]
